FAERS Safety Report 7334533-5 (Version None)
Quarter: 2011Q1

REPORT INFORMATION
  Report Type: 
  Country: None (occurrence: None)
  Receive Date: 20110307
  Receipt Date: 20110210
  Transmission Date: 20110831
  Serious: No
  Sender: FDA-Public Use
  Company Number: US-KINGPHARMUSA00001-K201100146

PATIENT
  Age: 43 Year
  Sex: Female
  Weight: 49.887 kg

DRUGS (3)
  1. EMBEDA [Suspect]
     Indication: MYALGIA
     Dosage: 20 MG, QD
     Route: 048
     Dates: start: 20110127, end: 20110204
  2. SKELAXIN [Suspect]
     Indication: MYALGIA
     Dosage: 800 MG, TID
     Route: 048
  3. EMBEDA [Suspect]
     Dosage: 20 MG, BID
     Route: 048
     Dates: start: 20110205

REACTIONS (4)
  - AMNESIA [None]
  - MENTAL STATUS CHANGES [None]
  - COGNITIVE DISORDER [None]
  - FEELING ABNORMAL [None]
